FAERS Safety Report 6160118-2 (Version None)
Quarter: 2009Q2

REPORT INFORMATION
  Report Type: 
  Country: None (occurrence: None)
  Receive Date: 20090420
  Receipt Date: 20090410
  Transmission Date: 20091009
  Serious: Yes (Death, Life-Threatening, Hospitalization, Congenital Anomaly)
  Sender: FDA-Public Use
  Company Number: A0631002A

PATIENT
  Sex: Male
  Weight: 3.2 kg

DRUGS (13)
  1. PAXIL [Suspect]
     Indication: DEPRESSION
     Dosage: 12.5MG UNKNOWN
     Dates: start: 20010401
  2. FOLIC ACID [Concomitant]
  3. CALCIUM [Concomitant]
  4. COMPAZINE [Concomitant]
     Dates: start: 20010809, end: 20010809
  5. REGLAN [Concomitant]
     Dates: start: 20010809, end: 20010809
  6. LEVOXYL [Concomitant]
  7. VICODIN [Concomitant]
     Dates: start: 20010720, end: 20010720
  8. TERBUTALINE SULFATE [Concomitant]
  9. MAGNESIUM SULFATE [Concomitant]
  10. SYNTHROID [Concomitant]
  11. FIORICET [Concomitant]
     Dates: start: 20011201
  12. CARAFATE [Concomitant]
  13. INDOCIN [Concomitant]

REACTIONS (37)
  - ANURIA [None]
  - AORTIC STENOSIS [None]
  - ATRIAL SEPTAL DEFECT [None]
  - BRONCHOPNEUMONIA [None]
  - CARDIAC FAILURE [None]
  - CARDIAC MURMUR [None]
  - CARDIOGENIC SHOCK [None]
  - CARDIOMEGALY [None]
  - COARCTATION OF THE AORTA [None]
  - CYANOSIS [None]
  - DRUG EXPOSURE DURING PREGNANCY [None]
  - ENDOCARDIAL FIBROELASTOSIS [None]
  - HAEMORRHAGE INTRACRANIAL [None]
  - HEART DISEASE CONGENITAL [None]
  - HEPATIC FUNCTION ABNORMAL [None]
  - HYPERKALAEMIA [None]
  - HYPOPLASTIC LEFT HEART SYNDROME [None]
  - HYPOTENSION [None]
  - METABOLIC ACIDOSIS [None]
  - MITRAL VALVE INCOMPETENCE [None]
  - MULTI-ORGAN FAILURE [None]
  - MYOCARDIAL INFARCTION [None]
  - OXYGEN SATURATION DECREASED [None]
  - PATENT DUCTUS ARTERIOSUS [None]
  - PREMATURE BABY [None]
  - PULMONARY EMBOLISM [None]
  - PULMONARY HAEMORRHAGE [None]
  - PULMONARY INFARCTION [None]
  - PULMONARY MALFORMATION [None]
  - PYREXIA [None]
  - RENAL IMPAIRMENT [None]
  - RESPIRATORY DISTRESS [None]
  - RESPIRATORY FAILURE [None]
  - SEPSIS [None]
  - THROMBOCYTOPENIA [None]
  - TRICUSPID VALVE INCOMPETENCE [None]
  - WHITE BLOOD CELL COUNT INCREASED [None]
